FAERS Safety Report 20717507 (Version 2)
Quarter: 2022Q2

REPORT INFORMATION
  Report Type: Spontaneous
  Country: GR (occurrence: GR)
  Receive Date: 20220417
  Receipt Date: 20220506
  Transmission Date: 20220721
  Serious: Yes (Other)
  Sender: FDA-Public Use
  Company Number: GR-TEVA-2022-GR-2027131

PATIENT
  Age: 57 Year
  Sex: Male

DRUGS (2)
  1. VORICONAZOLE [Suspect]
     Active Substance: VORICONAZOLE
     Indication: Cryptococcosis
     Dosage: 8 MG/KG DAILY;
     Route: 065
  2. L-AMB [Concomitant]

REACTIONS (1)
  - Drug-induced liver injury [Unknown]
